FAERS Safety Report 10512934 (Version 3)
Quarter: 2014Q4

REPORT INFORMATION
  Report Type: Spontaneous
  Country: US (occurrence: US)
  Receive Date: 20141013
  Receipt Date: 20141204
  Transmission Date: 20150528
  Serious: No
  Sender: FDA-Public Use
  Company Number: US-009507513-1409USA010123

PATIENT
  Age: 60 Year
  Sex: Female

DRUGS (1)
  1. NASONEX [Suspect]
     Active Substance: MOMETASONE FUROATE
     Indication: SINUSITIS
     Dosage: 1 SPRAY IN EACH NOSTRIL IN THE MORNING, ROUTE:NASAL SPRAY
     Route: 045
     Dates: start: 200909

REACTIONS (4)
  - Nasal congestion [Not Recovered/Not Resolved]
  - Drug dose omission [Unknown]
  - Drug administration error [Unknown]
  - Product container issue [Unknown]

NARRATIVE: CASE EVENT DATE: 200909
